FAERS Safety Report 24103927 (Version 1)
Quarter: 2024Q3

REPORT INFORMATION
  Report Type: Spontaneous
  Country: US (occurrence: US)
  Receive Date: 20240717
  Receipt Date: 20240717
  Transmission Date: 20241017
  Serious: Yes (Death, Hospitalization)
  Sender: STRIDES
  Company Number: US-STRIDES ARCOLAB LIMITED-2024SP008475

PATIENT
  Age: 43 Year

DRUGS (1)
  1. AMLODIPINE [Suspect]
     Active Substance: AMLODIPINE BESYLATE
     Indication: Hypertension
     Dosage: UNK, (TAKEN ABOUT 20 TO 30 TABLETS)
     Route: 065

REACTIONS (15)
  - Cardiac arrest [Fatal]
  - Hypotension [Fatal]
  - Tachycardia [Fatal]
  - Anaemia [Fatal]
  - Metabolic acidosis [Fatal]
  - Lactic acidosis [Fatal]
  - Blood creatinine increased [Fatal]
  - Hypoperfusion [Fatal]
  - Electrocardiogram QT prolonged [Fatal]
  - Lethargy [Fatal]
  - Pulmonary congestion [Fatal]
  - Bradycardia [Fatal]
  - Pulse absent [Fatal]
  - Toxicity to various agents [Fatal]
  - Intentional overdose [Fatal]
